FAERS Safety Report 11977208 (Version 2)
Quarter: 2016Q2

REPORT INFORMATION
  Report Type: Report from Study
  Country: BR (occurrence: BR)
  Receive Date: 20160129
  Receipt Date: 20160404
  Transmission Date: 20160815
  Serious: Yes (Hospitalization, Other)
  Sender: FDA-Public Use
  Company Number: PHHY2014BR025068

PATIENT
  Age: 88 Year
  Sex: Female
  Weight: 68 kg

DRUGS (2)
  1. TENORETIC [Concomitant]
     Active Substance: ATENOLOL\CHLORTHALIDONE
     Indication: HYPERTENSION
     Dosage: 50 MG, UNK
     Route: 065
     Dates: start: 2009
  2. ACLASTA [Suspect]
     Active Substance: ZOLEDRONIC ACID
     Indication: OSTEOPOROSIS
     Dosage: 5 MG, Q12MO
     Route: 042
     Dates: start: 2005

REACTIONS (14)
  - Wound [Recovered/Resolved]
  - Nerve compression [Unknown]
  - Weight decreased [Unknown]
  - Presbyacusis [Recovered/Resolved]
  - Tinnitus [Recovered/Resolved]
  - Anaemia [Recovered/Resolved]
  - Ear pain [Recovered/Resolved]
  - Intestinal haemorrhage [Recovering/Resolving]
  - Excessive cerumen production [Recovered/Resolved]
  - Sciatic nerve injury [Unknown]
  - Bone loss [Unknown]
  - Dislocation of vertebra [Unknown]
  - Hypoacusis [Recovered/Resolved]
  - Pain in extremity [Not Recovered/Not Resolved]

NARRATIVE: CASE EVENT DATE: 20151112
